FAERS Safety Report 10400547 (Version 1)
Quarter: 2014Q3

REPORT INFORMATION
  Report Type: Spontaneous
  Country: US (occurrence: US)
  Receive Date: 20140821
  Receipt Date: 20140821
  Transmission Date: 20150326
  Serious: No
  Sender: FDA-Public Use
  Company Number: US-ASTRAZENECA-2013SE63172

PATIENT
  Age: 67 Year
  Sex: Female
  Weight: 134.3 kg

DRUGS (1)
  1. SYMBICORT [Suspect]
     Active Substance: BUDESONIDE\FORMOTEROL FUMARATE DIHYDRATE
     Indication: CHRONIC OBSTRUCTIVE PULMONARY DISEASE
     Dosage: 160/4.5 TWO INHALATIONS TWICE DAILY
     Route: 055

REACTIONS (5)
  - Arthralgia [Unknown]
  - Gait disturbance [Unknown]
  - Weight loss poor [Unknown]
  - Weight increased [Unknown]
  - Pain in extremity [Unknown]
